FAERS Safety Report 8542452-1 (Version None)
Quarter: 2012Q3

REPORT INFORMATION
  Report Type: 
  Country: None (occurrence: None)
  Receive Date: 20120726
  Receipt Date: 20110720
  Transmission Date: 20120928
  Serious: Yes (Other)
  Sender: FDA-Public Use
  Company Number: US-ASTRAZENECA-2007UW28982

PATIENT
  Age: 13482 Day
  Sex: Female
  Weight: 81.4 kg

DRUGS (20)
  1. SEROQUEL [Suspect]
     Route: 048
     Dates: start: 20060518, end: 20070501
  2. PAXIL [Concomitant]
     Dates: start: 20040409, end: 20041022
  3. METFORMIN HYDROCHLORIDE [Concomitant]
     Route: 048
  4. HYDROCHLOROTHIAZIDE [Concomitant]
  5. WELLBUTRIN [Concomitant]
     Dates: start: 20030214, end: 20040727
  6. LISINOPRIL [Concomitant]
  7. ACETAMINOPHEN AND HYDROCODONE BITARTRATE [Concomitant]
     Dosage: 705-50 MG
     Dates: start: 20060927
  8. ZANTAC [Concomitant]
  9. DEXAMETHASONE [Concomitant]
  10. PREDNISONE [Concomitant]
     Dates: start: 20060927
  11. FLUOXETINE HCL [Concomitant]
  12. SEROQUEL [Suspect]
     Indication: MANIA
     Dosage: 50 MG - 400 MG
     Route: 048
     Dates: start: 20060123
  13. SEROQUEL [Suspect]
     Route: 048
     Dates: start: 20060518, end: 20070501
  14. PAXIL [Concomitant]
  15. FASTIN [Concomitant]
     Dates: start: 20040601
  16. PROMETHAZINE [Concomitant]
     Indication: NAUSEA
  17. SEROQUEL [Suspect]
     Indication: SLEEP DISORDER
     Dosage: 50 MG - 400 MG
     Route: 048
     Dates: start: 20060123
  18. DIOVAN [Concomitant]
     Dosage: 80 MG  - 160 MG
  19. OXYCODONE HCL [Concomitant]
  20. FLAGYL [Concomitant]
     Dosage: 500 P.O. B.I.D.
     Dates: start: 20061214

REACTIONS (22)
  - SINUSITIS [None]
  - TYPE 2 DIABETES MELLITUS [None]
  - GASTROENTERITIS [None]
  - NECK PAIN [None]
  - SUICIDE ATTEMPT [None]
  - BIPOLAR DISORDER [None]
  - PAIN IN EXTREMITY [None]
  - RHINITIS ALLERGIC [None]
  - DIZZINESS [None]
  - BLOOD GLUCOSE INCREASED [None]
  - DEPRESSION [None]
  - ARTHROPOD BITE [None]
  - VAGINITIS BACTERIAL [None]
  - DYSPHONIA [None]
  - ABDOMINAL PAIN [None]
  - THERMAL BURN [None]
  - FLUSHING [None]
  - BRONCHITIS [None]
  - MUSCULOSKELETAL PAIN [None]
  - OEDEMA PERIPHERAL [None]
  - PELVIC INFLAMMATORY DISEASE [None]
  - HYPOAESTHESIA [None]
